FAERS Safety Report 8763251 (Version 1)
Quarter: 2012Q4

REPORT INFORMATION
  Report Type: 
  Country: US (occurrence: US)
  Receive Date: 20120831
  Receipt Date: 20120831
  Transmission Date: 20130627
  Serious: Yes (Hospitalization, Other)
  Sender: FDA-Public Use
  Company Number: US-SANOFI-AVENTIS-2012SA059658

PATIENT
  Sex: Female

DRUGS (5)
  1. LANTUS SOLOSTAR [Suspect]
     Dosage: took 24-26 units daily
     Route: 058
     Dates: start: 2007
  2. LANTUS [Suspect]
     Dosage: took 24-26 units daily
     Route: 058
     Dates: start: 2007
  3. SOLOSTAR [Suspect]
     Dates: start: 2007
  4. SOLOSTAR [Suspect]
     Dates: start: 2007
  5. HUMALOG [Suspect]
     Route: 065

REACTIONS (5)
  - Myocardial infarction [Unknown]
  - Cerebrovascular accident [Unknown]
  - Transient ischaemic attack [Unknown]
  - Cardiac failure congestive [Unknown]
  - Leg amputation [Unknown]
